FAERS Safety Report 7816281-8 (Version None)
Quarter: 2011Q4

REPORT INFORMATION
  Report Type: 
  Country: None (occurrence: None)
  Receive Date: 20111016
  Receipt Date: 20110919
  Transmission Date: 20120403
  Serious: Yes (Death)
  Sender: FDA-Public Use
  Company Number: DE-ROCHE-804377

PATIENT
  Age: 17 Year
  Sex: Male
  Weight: 72 kg

DRUGS (1)
  1. ISOTRETINOIN [Suspect]
     Indication: ACNE CONGLOBATA
     Route: 048
     Dates: start: 20040812, end: 20041231

REACTIONS (2)
  - DEPRESSION [None]
  - COMPLETED SUICIDE [None]
